FAERS Safety Report 23046431 (Version 1)
Quarter: 2023Q4

REPORT INFORMATION
  Report Type: Spontaneous
  Country: CA (occurrence: CA)
  Receive Date: 20231009
  Receipt Date: 20231009
  Transmission Date: 20240110
  Serious: Yes (Other)
  Sender: FDA-Public Use
  Company Number: CA-PFIZER INC-202300314551

PATIENT
  Age: 65 Year
  Sex: Male
  Weight: 101 kg

DRUGS (1)
  1. DEPO-MEDROL [Suspect]
     Active Substance: METHYLPREDNISOLONE ACETATE
     Indication: Bursitis
     Dosage: 80 MG, SINGLE

REACTIONS (2)
  - Bursitis infective [Recovering/Resolving]
  - Mycobacterial infection [Recovering/Resolving]
